FAERS Safety Report 15985575 (Version 1)
Quarter: 2019Q1

REPORT INFORMATION
  Report Type: Spontaneous
  Country: US (occurrence: US)
  Receive Date: 20190220
  Receipt Date: 20190220
  Transmission Date: 20190418
  Serious: Yes (Hospitalization, Other)
  Sender: FDA-Public Use
  Company Number: US-JAZZ-2018-US-006589

PATIENT
  Age: 22 Year
  Sex: Female

DRUGS (4)
  1. VALPROATE [Suspect]
     Active Substance: VALPROIC ACID
     Indication: EPILEPSY
     Dosage: 1000 MG, UNK
     Route: 048
  2. VALPROATE [Suspect]
     Active Substance: VALPROIC ACID
     Dosage: 1500 MG, UNK
     Route: 048
  3. CLOZAPINE. [Suspect]
     Active Substance: CLOZAPINE
     Indication: SCHIZOPHRENIA
     Dosage: 400 MG, UNK
     Route: 048
  4. CLOZAPINE. [Suspect]
     Active Substance: CLOZAPINE
     Dosage: 350 MG, UNK
     Route: 048

REACTIONS (7)
  - Myoclonus [Recovered/Resolved]
  - Orthostatic hypotension [Unknown]
  - Neutropenia [Unknown]
  - Dyskinesia [Unknown]
  - Salivary hypersecretion [Unknown]
  - Constipation [Unknown]
  - Fall [Recovered/Resolved]
